FAERS Safety Report 16617513 (Version 1)
Quarter: 2019Q3

REPORT INFORMATION
  Report Type: Spontaneous
  Country: US (occurrence: US)
  Receive Date: 20190723
  Receipt Date: 20190723
  Transmission Date: 20191004
  Serious: Yes (Death, Other)
  Sender: FDA-Public Use
  Company Number: US-BECTON DICKINSON-2019BDN00275

PATIENT

DRUGS (3)
  1. CHLORAPREP [Suspect]
     Active Substance: CHLORHEXIDINE GLUCONATE\ISOPROPYL ALCOHOL
     Indication: INFECTION PROPHYLAXIS
     Route: 061
  2. POWER TL ACUTE DIALYSIS FP TRAY STRAIGHT 15 CM [Suspect]
     Active Substance: DEVICE
  3. LIDOCAINE. [Suspect]
     Active Substance: LIDOCAINE
     Dosage: 5 ML

REACTIONS (4)
  - Complication of device insertion [None]
  - Dyspnoea [Unknown]
  - Pulseless electrical activity [Fatal]
  - Cardiac procedure complication [Fatal]
